FAERS Safety Report 10670267 (Version 1)
Quarter: 2014Q4

REPORT INFORMATION
  Report Type: Spontaneous
  Country: NL (occurrence: NL)
  Receive Date: 20141223
  Receipt Date: 20141223
  Transmission Date: 20150529
  Serious: Yes (Hospitalization)
  Sender: FDA-Public Use
  Company Number: NL-BIOGENIDEC-2014BI134970

PATIENT
  Age: 48 Year
  Sex: Female

DRUGS (3)
  1. TYSABRI [Concomitant]
     Active Substance: NATALIZUMAB
     Indication: MULTIPLE SCLEROSIS
     Route: 042
     Dates: start: 2006
  2. STRUMAZOL [Concomitant]
     Indication: HYPERTHYROIDISM
  3. FAMPYRA [Suspect]
     Active Substance: DALFAMPRIDINE
     Indication: MULTIPLE SCLEROSIS
     Route: 048
     Dates: start: 20120606

REACTIONS (5)
  - Weight decreased [Unknown]
  - Palpitations [Recovered/Resolved]
  - Hyperthyroidism [Unknown]
  - Syncope [Recovered/Resolved]
  - General symptom [Recovered/Resolved]

NARRATIVE: CASE EVENT DATE: 20130510
